FAERS Safety Report 17821207 (Version 1)
Quarter: 2020Q2

REPORT INFORMATION
  Report Type: Spontaneous
  Country: CA (occurrence: CA)
  Receive Date: 20200525
  Receipt Date: 20200525
  Transmission Date: 20200714
  Serious: Yes (Hospitalization, Other)
  Sender: FDA-Public Use
  Company Number: CA-SA-2020SA132099

PATIENT
  Age: 8 Year
  Sex: Female
  Weight: 17 kg

DRUGS (3)
  1. HYDROXYZINE [Concomitant]
     Active Substance: HYDROXYZINE HYDROCHLORIDE
  2. RIFAMPICIN [Suspect]
     Active Substance: RIFAMPIN
     Indication: CHOLESTATIC PRURITUS
     Dosage: 170 MG, BID
     Route: 048
  3. URSODIOL. [Concomitant]
     Active Substance: URSODIOL

REACTIONS (3)
  - Angina bullosa haemorrhagica [Recovered/Resolved]
  - Thrombocytopenia [Recovered/Resolved]
  - Purpura [Recovered/Resolved]
